FAERS Safety Report 14825229 (Version 2)
Quarter: 2018Q3

REPORT INFORMATION
  Report Type: Spontaneous
  Country: US (occurrence: US)
  Receive Date: 20180430
  Receipt Date: 20180705
  Transmission Date: 20181010
  Serious: Yes (Other)
  Sender: FDA-Public Use
  Company Number: US-ROCHE-2113890

PATIENT
  Age: 74 Year
  Sex: Male
  Weight: 96.93 kg

DRUGS (1)
  1. ESBRIET [Suspect]
     Active Substance: PIRFENIDONE
     Indication: IDIOPATHIC PULMONARY FIBROSIS
     Route: 048
     Dates: start: 20170117, end: 20180413

REACTIONS (2)
  - Renal impairment [Unknown]
  - Fatigue [Unknown]

NARRATIVE: CASE EVENT DATE: 201804
